FAERS Safety Report 11178061 (Version 1)
Quarter: 2015Q2

REPORT INFORMATION
  Report Type: Spontaneous
  Country: US (occurrence: None)
  Receive Date: 20150515
  Receipt Date: 20150515
  Transmission Date: 20150821
  Serious: Yes (Other)
  Sender: FDA-Public Use
  Company Number: 120029

PATIENT
  Age: 22 Year
  Sex: Female
  Weight: 42.2 kg

DRUGS (2)
  1. CIMZIA [Suspect]
     Active Substance: CERTOLIZUMAB PEGOL
     Indication: CROHN^S DISEASE
     Dosage: EV 4 WEEKS
     Route: 058
     Dates: start: 201401
  2. PURINTHOL (MECAPTOPURINE) [Concomitant]

REACTIONS (1)
  - Erythema nodosum [None]

NARRATIVE: CASE EVENT DATE: 20140418
